FAERS Safety Report 9708903 (Version 1)
Quarter: 2013Q4

REPORT INFORMATION
  Report Type: Spontaneous
  Country: US (occurrence: US)
  Receive Date: 20131125
  Receipt Date: 20131125
  Transmission Date: 20140711
  Serious: Yes (Other)
  Sender: FDA-Public Use
  Company Number: US-BAXTER-2013BAX045933

PATIENT
  Age: 31 Year
  Sex: Female
  Weight: 86 kg

DRUGS (13)
  1. OSMITROL INJECTION (MANNITOL INJECTION, USP) [Suspect]
     Indication: CRANIOTOMY
     Route: 042
  2. OSMITROL INJECTION (MANNITOL INJECTION, USP) [Suspect]
     Indication: CYTOREDUCTIVE SURGERY
     Route: 042
  3. FORANE (ISOFLURANE, USP) [Suspect]
     Indication: CRANIOTOMY
  4. FORANE (ISOFLURANE, USP) [Suspect]
     Indication: CYTOREDUCTIVE SURGERY
  5. FORANE (ISOFLURANE, USP) [Suspect]
     Indication: MAINTENANCE OF ANAESTHESIA
  6. LIDOCAINE HYDROCHLORIDE AND 5% DEXTROSE INJECTION, USP [Suspect]
     Indication: INDUCTION OF ANAESTHESIA
     Route: 042
  7. MIDAZOLAM [Suspect]
     Indication: PREMEDICATION
     Route: 042
  8. PROPOFOL [Suspect]
     Indication: INDUCTION OF ANAESTHESIA
     Route: 042
  9. FENTANYL [Suspect]
     Indication: INDUCTION OF ANAESTHESIA
     Route: 042
  10. ROCURONIUM BROMIDE [Suspect]
     Indication: INDUCTION OF ANAESTHESIA
     Route: 042
  11. DEXAMETHASONE [Suspect]
     Indication: PRODUCT USED FOR UNKNOWN INDICATION
  12. CLINDAMYCIN [Suspect]
     Indication: PRODUCT USED FOR UNKNOWN INDICATION
  13. SUFENTANIL [Suspect]
     Indication: MAINTENANCE OF ANAESTHESIA
     Route: 042

REACTIONS (2)
  - Electrocardiogram T wave peaked [Recovered/Resolved]
  - Hyperkalaemia [Recovered/Resolved]
